FAERS Safety Report 7626682-9 (Version None)
Quarter: 2011Q3

REPORT INFORMATION
  Report Type: 
  Country: None (occurrence: None)
  Receive Date: 20110721
  Receipt Date: 20110715
  Transmission Date: 20111222
  Serious: Yes (Other)
  Sender: FDA-Public Use
  Company Number: US-ROCHE-790373

PATIENT
  Sex: Female

DRUGS (2)
  1. ACTONEL [Suspect]
     Route: 065
  2. BONIVA [Suspect]
     Route: 065

REACTIONS (4)
  - BLOOD CHOLESTEROL INCREASED [None]
  - BODY TEMPERATURE DECREASED [None]
  - DYSPEPSIA [None]
  - IRITIS [None]
